FAERS Safety Report 6544803-6 (Version None)
Quarter: 2010Q1

REPORT INFORMATION
  Report Type: 
  Country: None (occurrence: None)
  Receive Date: 20100121
  Receipt Date: 20100119
  Transmission Date: 20100710
  Serious: Yes (Other)
  Sender: FDA-Public Use
  Company Number: CH-ROXANE LABORATORIES, INC.-2010-DE-00190GD

PATIENT
  Age: 35 Year
  Sex: Female
  Weight: 52 kg

DRUGS (14)
  1. MORPHINE [Suspect]
     Indication: PAIN
     Dosage: 2 MG
  2. FENTANYL [Suspect]
     Indication: INDUCTION OF ANAESTHESIA
     Dosage: 150 MCG
  3. FENTANYL [Suspect]
     Indication: MAINTENANCE OF ANAESTHESIA
     Dosage: 200 MCG
  4. ST. JOHN'S WORT [Concomitant]
     Indication: DEPRESSION
  5. MISOPROSTOL [Concomitant]
     Indication: ANAESTHETIC PREMEDICATION
     Dosage: 200 MCG
     Route: 048
  6. MIDAZOLAM HCL [Concomitant]
     Indication: ANAESTHETIC PREMEDICATION
     Dosage: 7.5 MG
     Route: 048
  7. PROPOFOL [Concomitant]
     Indication: INDUCTION OF ANAESTHESIA
     Dosage: 150 MG
  8. LIDOCAINE [Concomitant]
     Indication: INDUCTION OF ANAESTHESIA
     Dosage: 50 MG
  9. ROCURONIUM [Concomitant]
     Indication: INDUCTION OF ANAESTHESIA
     Dosage: 35 MG
  10. ROCURONIUM [Concomitant]
     Indication: MAINTENANCE OF ANAESTHESIA
     Dosage: 20 MG
  11. SEVOFLURANE [Concomitant]
     Indication: MAINTENANCE OF ANAESTHESIA
     Route: 055
  12. CLINDAMYCIN [Concomitant]
     Dosage: 600 MG
  13. KETOROLAC TROMETHAMINE [Concomitant]
     Dosage: 30 MG
  14. PARACETAMOL [Concomitant]
     Indication: PAIN
     Dosage: 1 G

REACTIONS (4)
  - DYSTONIA [None]
  - EMOTIONAL DISTRESS [None]
  - PARKINSONISM [None]
  - TACHYCARDIA [None]
